FAERS Safety Report 10401337 (Version 1)
Quarter: 2014Q3

REPORT INFORMATION
  Report Type: Spontaneous
  Country: ES (occurrence: ES)
  Receive Date: 20140822
  Receipt Date: 20140822
  Transmission Date: 20150326
  Serious: Yes (Life-Threatening, Hospitalization)
  Sender: FDA-Public Use
  Company Number: ES-AMGEN-ESPSP2014062837

PATIENT
  Age: 66 Year
  Sex: Female
  Weight: 70 kg

DRUGS (9)
  1. SEGURIL [Concomitant]
     Active Substance: FUROSEMIDE
     Indication: LIVER TRANSPLANT
     Dosage: 200 MG, UNK
     Dates: start: 20140604
  2. ULCOTENAL [Concomitant]
     Indication: POLYARTHRITIS
     Dosage: 40 MG, UNK
     Route: 048
     Dates: start: 20140702
  3. CERTICAN [Concomitant]
     Active Substance: EVEROLIMUS
     Indication: LIVER TRANSPLANT
     Dosage: 0.25 MG, UNK
     Dates: start: 20140328
  4. ATARAX [Concomitant]
     Active Substance: HYDROXYZINE\HYDROXYZINE HYDROCHLORIDE
     Indication: ANXIETY
     Dosage: 25 MG, QD (EVERY 24 HRS)
     Route: 048
     Dates: start: 20140611
  5. DEMILOS [Concomitant]
     Indication: POLYARTHRITIS
     Dosage: 1 DF 600 MG/1000 UI , UNK
     Dates: start: 20140710, end: 20140721
  6. PROLIA [Suspect]
     Active Substance: DENOSUMAB
     Indication: POLYARTHRITIS
     Dosage: 60 MG, Q6MO
     Route: 065
     Dates: start: 20140710
  7. NOLOTIL                            /06276702/ [Concomitant]
     Indication: BACK PAIN
     Dosage: 5 ML, UNK
     Dates: start: 20140702, end: 20140705
  8. LEXXEMA [Concomitant]
     Indication: INTERTRIGO
     Dosage: 1 DF, UNK
     Dates: start: 20140617, end: 20140630
  9. NITROFURANTOIN. [Concomitant]
     Active Substance: NITROFURANTOIN
     Indication: CYSTITIS
     Dosage: 50 MG, UNK
     Route: 048
     Dates: start: 20140704, end: 20140721

REACTIONS (3)
  - Medication error [Recovering/Resolving]
  - Paraesthesia [Recovering/Resolving]
  - Tetany [Recovering/Resolving]

NARRATIVE: CASE EVENT DATE: 20140714
